FAERS Safety Report 7292856-2 (Version None)
Quarter: 2011Q1

REPORT INFORMATION
  Report Type: 
  Country: None (occurrence: None)
  Receive Date: 20110204
  Receipt Date: 20110128
  Transmission Date: 20110831
  Serious: Yes (Hospitalization, Other)
  Sender: FDA-Public Use
  Company Number: 2009SP020705

PATIENT
  Age: 20 Year
  Sex: Female
  Weight: 83.9154 kg

DRUGS (2)
  1. TYLENOL [Concomitant]
  2. NUVARING [Suspect]
     Indication: CONTRACEPTION
     Dosage: VAG
     Route: 067
     Dates: start: 20040622, end: 20061201

REACTIONS (11)
  - PULMONARY EMBOLISM [None]
  - DYSPNOEA [None]
  - NECK PAIN [None]
  - ASTHMA [None]
  - DERMATITIS CONTACT [None]
  - PULMONARY THROMBOSIS [None]
  - ROAD TRAFFIC ACCIDENT [None]
  - DEEP VEIN THROMBOSIS [None]
  - INCISION SITE PAIN [None]
  - BACK PAIN [None]
  - UPPER LIMB FRACTURE [None]
